FAERS Safety Report 6192996-5 (Version None)
Quarter: 2009Q2

REPORT INFORMATION
  Report Type: 
  Country: None (occurrence: None)
  Receive Date: 20090514
  Receipt Date: 20090506
  Transmission Date: 20091009
  Serious: Yes (Other)
  Sender: FDA-Public Use
  Company Number: CHPA2009US11309

PATIENT
  Age: 42 Year
  Sex: Female
  Weight: 81.6 kg

DRUGS (1)
  1. VOLTAREN [Suspect]
     Dosage: TOPICAL
     Route: 061

REACTIONS (8)
  - ACCIDENTAL EXPOSURE [None]
  - BLISTER [None]
  - BURNS SECOND DEGREE [None]
  - BURNS THIRD DEGREE [None]
  - HYPOAESTHESIA [None]
  - PARAESTHESIA [None]
  - SKIN DISCOLOURATION [None]
  - WRONG TECHNIQUE IN DRUG USAGE PROCESS [None]
